FAERS Safety Report 8107496-2 (Version None)
Quarter: 2012Q1

REPORT INFORMATION
  Report Type: 
  Country: None (occurrence: None)
  Receive Date: 20120202
  Receipt Date: 20120119
  Transmission Date: 20120608
  Serious: Yes (Hospitalization, Other)
  Sender: FDA-Public Use
  Company Number: NL-ROCHE-1032218

PATIENT
  Age: 54 Year
  Sex: Female

DRUGS (8)
  1. DEXAMETHASONE [Concomitant]
  2. PANTOPRAZOLE [Concomitant]
  3. ACTEMRA [Suspect]
     Indication: RHEUMATOID ARTHRITIS
     Route: 042
     Dates: start: 20110909
  4. POTASSIUM CHLORIDE [Concomitant]
     Indication: HYPOKALAEMIA
  5. PLAQUENIL [Concomitant]
  6. METOPROLOL TARTRATE [Concomitant]
  7. HYDROCHLOROTHIAZIDE [Concomitant]
  8. METOCLOPRAMIDE [Concomitant]

REACTIONS (6)
  - PHARYNGEAL OEDEMA [None]
  - PURPURA [None]
  - SERUM SICKNESS [None]
  - ARTHROPATHY [None]
  - VASCULITIS [None]
  - HAEMOPTYSIS [None]
